FAERS Safety Report 8001217-X (Version None)
Quarter: 2011Q4

REPORT INFORMATION
  Report Type: 
  Country: None (occurrence: None)
  Receive Date: 20111222
  Receipt Date: 20111212
  Transmission Date: 20120403
  Serious: Yes (Hospitalization, Other)
  Sender: FDA-Public Use
  Company Number: FR-PFIZER INC-2011308866

PATIENT
  Age: 87 Year
  Sex: Female

DRUGS (10)
  1. COUMADIN [Concomitant]
     Dosage: UNK
     Dates: end: 20100828
  2. PAROXETINE HCL [Concomitant]
  3. ISOPTIN [Suspect]
     Dosage: 240 MG, 1X/DAY
     Route: 048
     Dates: end: 20110828
  4. LASIX [Concomitant]
  5. CORDARONE [Suspect]
     Dosage: 200 MG, 1X/DAY
     Route: 048
     Dates: end: 20100828
  6. SPIRIVA [Concomitant]
  7. AUGMENTIN [Concomitant]
     Dosage: UNK
     Dates: start: 20110823
  8. ATORVASTATIN CALCIUM [Concomitant]
  9. ZOLPIDEM [Concomitant]
  10. ALPRAZOLAM [Concomitant]

REACTIONS (8)
  - RESPIRATORY ACIDOSIS [None]
  - ACUTE PULMONARY OEDEMA [None]
  - BLOOD CREATINE PHOSPHOKINASE INCREASED [None]
  - ARRHYTHMIA [None]
  - ATRIOVENTRICULAR BLOCK COMPLETE [None]
  - CHRONIC OBSTRUCTIVE PULMONARY DISEASE [None]
  - INTERNATIONAL NORMALISED RATIO INCREASED [None]
  - BRADYCARDIA [None]
